FAERS Safety Report 14053282 (Version 1)
Quarter: 2017Q4

REPORT INFORMATION
  Report Type: Spontaneous
  Country: US (occurrence: None)
  Receive Date: 20171005
  Receipt Date: 20171005
  Transmission Date: 20180321
  Serious: Yes (Life-Threatening)
  Sender: FDA-Public Use
  Company Number: None

PATIENT
  Age: 49 Year
  Sex: Female
  Weight: 113.9 kg

DRUGS (28)
  1. ACETAMINOPHEN. [Concomitant]
     Active Substance: ACETAMINOPHEN
  2. RIBAVIRIN 1000MG [Suspect]
     Active Substance: RIBAVIRIN
     Indication: HEPATITIS C
     Route: 048
     Dates: start: 20160827, end: 20170210
  3. TRAMADOL. [Concomitant]
     Active Substance: TRAMADOL
  4. BACTRIM [Concomitant]
     Active Substance: SULFAMETHOXAZOLE\TRIMETHOPRIM
  5. VITAMIN D3 [Concomitant]
     Active Substance: CHOLECALCIFEROL
  6. NORCO [Concomitant]
     Active Substance: ACETAMINOPHEN\HYDROCODONE BITARTRATE
  7. ERTAPENEM. [Concomitant]
     Active Substance: ERTAPENEM SODIUM
  8. MULTIVITAMIN [Concomitant]
     Active Substance: VITAMINS
  9. POTASSIUM CHLORIDE. [Concomitant]
     Active Substance: POTASSIUM CHLORIDE
  10. SPIRONOLACTONE. [Concomitant]
     Active Substance: SPIRONOLACTONE
  11. LASIX [Concomitant]
     Active Substance: FUROSEMIDE
  12. GLUCAGON. [Concomitant]
     Active Substance: GLUCAGON
  13. NALOXONE [Concomitant]
     Active Substance: NALOXONE
  14. CIPRO [Concomitant]
     Active Substance: CIPROFLOXACIN HYDROCHLORIDE
  15. ONDANSETRON [Concomitant]
     Active Substance: ONDANSETRON
  16. SODIUM CHLORIDE. [Concomitant]
     Active Substance: SODIUM CHLORIDE
  17. DILAUDID [Concomitant]
     Active Substance: HYDROMORPHONE HYDROCHLORIDE
  18. REGLAN [Concomitant]
     Active Substance: METOCLOPRAMIDE HYDROCHLORIDE
  19. RIFAXIMIN. [Concomitant]
     Active Substance: RIFAXIMIN
  20. SENNA [Concomitant]
     Active Substance: SENNA LEAF\SENNOSIDES\SENNOSIDES A AND B
  21. LIDOCAINE. [Concomitant]
     Active Substance: LIDOCAINE
  22. LACTULOSE. [Concomitant]
     Active Substance: LACTULOSE
  23. DEXTROSE. [Concomitant]
     Active Substance: DEXTROSE
  24. METOCLOPRAMIDE. [Concomitant]
     Active Substance: METOCLOPRAMIDE
  25. EPCLUSA [Suspect]
     Active Substance: SOFOSBUVIR\VELPATASVIR
     Indication: HEPATITIS C
     Dosage: 400MG/100MG QD ORAL
     Route: 048
     Dates: start: 20160827, end: 20170210
  26. GLUCOSE [Concomitant]
     Active Substance: DEXTROSE
  27. ALBUTEROL. [Concomitant]
     Active Substance: ALBUTEROL
  28. VITAMIN D [Concomitant]
     Active Substance: CHOLECALCIFEROL

REACTIONS (5)
  - Back pain [None]
  - Escherichia infection [None]
  - Culture positive [None]
  - Influenza like illness [None]
  - Abdominal distension [None]

NARRATIVE: CASE EVENT DATE: 20170130
